FAERS Safety Report 4778912-9 (Version None)
Quarter: 2005Q3

REPORT INFORMATION
  Report Type: 
  Country: None (occurrence: None)
  Receive Date: 20050922
  Receipt Date: 20050909
  Transmission Date: 20060218
  Serious: Yes (Hospitalization)
  Sender: FDA-Public Use
  Company Number: 2005S1000187

PATIENT
  Age: 55 Year
  Sex: Male
  Weight: 147.7 kg

DRUGS (5)
  1. CUBICIN [Suspect]
     Indication: CELLULITIS
     Dosage: 600 MG; IV
     Route: 042
     Dates: start: 20050223
  2. CUBICIN [Suspect]
     Indication: LYMPHOEDEMA
     Dosage: 600 MG; IV
     Route: 042
     Dates: start: 20050223
  3. MAXIPIME [Concomitant]
  4. CIPROFLOXACIN [Concomitant]
  5. VANCOMYCIN [Concomitant]

REACTIONS (7)
  - ANAEMIA [None]
  - CELLULITIS [None]
  - CONDITION AGGRAVATED [None]
  - DISEASE RECURRENCE [None]
  - INFECTION [None]
  - LEUKOCYTOSIS [None]
  - LYMPHOEDEMA [None]
